FAERS Safety Report 6852841-9 (Version None)
Quarter: 2010Q3

REPORT INFORMATION
  Report Type: 
  Country: None (occurrence: None)
  Receive Date: 20100717
  Receipt Date: 20080123
  Transmission Date: 20110219
  Serious: No
  Sender: FDA-Public Use
  Company Number: US-PFIZER INC-2007097894

PATIENT
  Sex: Female
  Weight: 50 kg

DRUGS (4)
  1. CHANTIX [Suspect]
     Indication: SMOKING CESSATION THERAPY
     Dates: start: 20071109, end: 20071115
  2. DRUG, UNSPECIFIED [Suspect]
     Indication: CONVULSION
  3. PHENOBARBITAL [Concomitant]
  4. TEGRETOL [Concomitant]

REACTIONS (2)
  - FEELING ABNORMAL [None]
  - INHIBITORY DRUG INTERACTION [None]
